FAERS Safety Report 11734451 (Version 1)
Quarter: 2015Q4

REPORT INFORMATION
  Report Type: Spontaneous
  Country: US (occurrence: US)
  Receive Date: 20151113
  Receipt Date: 20151113
  Transmission Date: 20160304
  Serious: Yes (Hospitalization)
  Sender: FDA-Public Use
  Company Number: US-GUERBET LLC-1044154

PATIENT
  Age: 79 Year
  Sex: Male
  Weight: 98 kg

DRUGS (4)
  1. OXILAN [Suspect]
     Active Substance: IOXILAN
     Indication: CATHETERISATION CARDIAC
     Dates: start: 20070726, end: 20070726
  2. FENTANYL. [Concomitant]
     Active Substance: FENTANYL
  3. ANGIOMAX [Concomitant]
     Active Substance: BIVALIRUDIN
  4. VERSED(MIDAZOLAM) [Concomitant]

REACTIONS (2)
  - Urticaria [Recovered/Resolved]
  - Respiratory disorder [Recovered/Resolved]

NARRATIVE: CASE EVENT DATE: 20070726
